FAERS Safety Report 5659493-4 (Version None)
Quarter: 2008Q1

REPORT INFORMATION
  Report Type: 
  Country: None (occurrence: None)
  Receive Date: 20080311
  Receipt Date: 20080229
  Transmission Date: 20080703
  Serious: Yes (Other)
  Sender: FDA-Public Use
  Company Number: AU-NOVOPROD-271310

PATIENT
  Sex: Female
  Weight: 98 kg

DRUGS (14)
  1. NOVORAPID [Suspect]
     Indication: DRUG USE FOR UNKNOWN INDICATION
     Dosage: 20+10+10 IU, QD
     Dates: start: 20060720
  2. LEVEMIR [Suspect]
     Indication: DRUG USE FOR UNKNOWN INDICATION
     Dosage: 48 IU, QD
     Dates: start: 20070220
  3. SIMVASTIN [Concomitant]
     Dosage: 80 MG, QD
     Route: 048
  4. FLUTICASONE [Concomitant]
     Dosage: 250+250 MG, QD
     Route: 055
  5. CARBAMAZEPINE [Concomitant]
     Dosage: 600 MG, QD
     Route: 048
  6. ACETAMINOPHEN [Concomitant]
     Dosage: 3 G, QD
     Route: 048
  7. FRUSEMIDE                          /00032601/ [Concomitant]
     Dosage: 500 MG, QD
     Route: 048
  8. OXYCODONE HCL [Concomitant]
     Dosage: 10 MG, QD
     Route: 048
  9. ESOMEPRAZOLE MAGNESIUM [Concomitant]
     Dosage: 40 MG, QD
     Route: 048
  10. SLOW-K [Concomitant]
     Dosage: 3.6 G, QD
     Route: 048
  11. MYADEC                             /00230101/ [Concomitant]
     Dosage: 1 TAB, QD
     Route: 048
  12. ALUMINIUM ACETATE [Concomitant]
     Route: 061
  13. BETAMETHASONE [Concomitant]
     Route: 061
  14. MORPHINE SULFATE [Concomitant]
     Dosage: 20 MG, QD
     Route: 048

REACTIONS (3)
  - INJECTION SITE ERYTHEMA [None]
  - INJECTION SITE PRURITUS [None]
  - SKIN ULCER [None]
